FAERS Safety Report 22648978 (Version 2)
Quarter: 2023Q2

REPORT INFORMATION
  Report Type: Spontaneous
  Country: DE (occurrence: DE)
  Receive Date: 20230628
  Receipt Date: 20230629
  Transmission Date: 20230722
  Serious: Yes (Other)
  Sender: FDA-Public Use
  Company Number: DE-002147023-NVSC2023DE144176

PATIENT
  Sex: Female

DRUGS (1)
  1. LUCENTIS [Suspect]
     Active Substance: RANIBIZUMAB
     Indication: Neovascular age-related macular degeneration
     Dosage: UNK
     Route: 065
     Dates: end: 20220816

REACTIONS (7)
  - Circulatory collapse [Unknown]
  - Hypotension [Unknown]
  - Visual impairment [Recovered/Resolved]
  - Neovascular age-related macular degeneration [Unknown]
  - Disease progression [Unknown]
  - Headache [Not Recovered/Not Resolved]
  - Conjunctivitis [Unknown]

NARRATIVE: CASE EVENT DATE: 20220816
